FAERS Safety Report 14260789 (Version 1)
Quarter: 2017Q4

REPORT INFORMATION
  Report Type: Spontaneous
  Country: AU (occurrence: AU)
  Receive Date: 20171207
  Receipt Date: 20171207
  Transmission Date: 20180321
  Serious: Yes (Other)
  Sender: FDA-Public Use
  Company Number: AU-009507513-1603AUS001911

PATIENT

DRUGS (2)
  1. ONCOTICE [Suspect]
     Active Substance: BACILLUS CALMETTE-GUERIN SUBSTRAIN TICE LIVE ANTIGEN
     Indication: BLADDER CANCER
     Dosage: 500 MILLION COLONY FORMING UNITS PER TREATMENT WITH 2 HR OF RETENTION
     Route: 043
  2. ONCOTICE [Suspect]
     Active Substance: BACILLUS CALMETTE-GUERIN SUBSTRAIN TICE LIVE ANTIGEN
     Dosage: WEEKLY INDUCTION THERAPY FOR 6 WEEKS
     Route: 043

REACTIONS (5)
  - Urosepsis [Unknown]
  - Haematuria [Unknown]
  - Cystitis [Unknown]
  - Disseminated Bacillus Calmette-Guerin infection [Unknown]
  - Abdominal discomfort [Unknown]
